FAERS Safety Report 15438626 (Version 1)
Quarter: 2018Q3

REPORT INFORMATION
  Report Type: Other
  Country: US (occurrence: US)
  Receive Date: 20180928
  Receipt Date: 20180928
  Transmission Date: 20181010
  Serious: Yes (Other)
  Sender: FDA-Public Use
  Company Number: US-BIOCON LIMITED-2055446

PATIENT
  Age: 45 Year
  Sex: Female

DRUGS (3)
  1. ROSUVASTATIN CALCIUM. [Suspect]
     Active Substance: ROSUVASTATIN CALCIUM
     Indication: HYPERLIPIDAEMIA
     Route: 048
  2. LEVOTHYROXINE. [Concomitant]
     Active Substance: LEVOTHYROXINE
     Route: 048
  3. COLESEVELAM [Concomitant]
     Active Substance: COLESEVELAM

REACTIONS (1)
  - Angioedema [Recovered/Resolved]
